FAERS Safety Report 21254637 (Version 1)
Quarter: 2022Q3

REPORT INFORMATION
  Report Type: Spontaneous
  Country: US (occurrence: None)
  Receive Date: 20220824
  Receipt Date: 20220824
  Transmission Date: 20221027
  Serious: Yes (Disabling)
  Sender: FDA-Public Use
  Company Number: None

PATIENT
  Age: 47 Year
  Sex: Female
  Weight: 79.65 kg

DRUGS (1)
  1. MAGNESIUM CITRATE [Suspect]
     Active Substance: MAGNESIUM CITRATE
     Indication: Gastrointestinal hypomotility
     Dosage: OTHER FREQUENCY : 3 TO 4 TIMES WEEK;?
     Route: 048
     Dates: start: 20220601, end: 20220823

REACTIONS (5)
  - Recalled product administered [None]
  - Headache [None]
  - Pain [None]
  - Nausea [None]
  - Unevaluable event [None]

NARRATIVE: CASE EVENT DATE: 20220701
